FAERS Safety Report 9333847 (Version 1)
Quarter: 2013Q2

REPORT INFORMATION
  Report Type: Spontaneous
  Country: US (occurrence: US)
  Receive Date: 20130606
  Receipt Date: 20130606
  Transmission Date: 20140414
  Serious: No
  Sender: FDA-Public Use
  Company Number: US-AMGEN-USASP2013005966

PATIENT
  Age: 63 Year
  Sex: Female

DRUGS (9)
  1. PROLIA [Suspect]
     Indication: OSTEOPOROSIS POSTMENOPAUSAL
     Dosage: 60 MG, Q6MO
     Dates: start: 201106
  2. PROLIA [Suspect]
     Dosage: UNK
     Dates: start: 20111223
  3. PROLIA [Suspect]
     Dosage: UNK
     Dates: start: 20120629
  4. PROLIA [Suspect]
     Dosage: UNK
     Dates: start: 20130121
  5. PROLIA [Suspect]
  6. CALTRATE WITH VITAMIN D [Concomitant]
     Dosage: UNK UNK, BID
  7. PROPRANOLOL [Concomitant]
  8. PREVACID [Concomitant]
     Dosage: 30 MG, UNK
  9. NORTRIPTYLINE [Concomitant]

REACTIONS (2)
  - Viral infection [Recovered/Resolved]
  - Pityriasis lichenoides et varioliformis acuta [Recovered/Resolved]
